FAERS Safety Report 16850960 (Version 1)
Quarter: 2019Q3

REPORT INFORMATION
  Report Type: Spontaneous
  Country: JP (occurrence: JP)
  Receive Date: 20190925
  Receipt Date: 20190925
  Transmission Date: 20191005
  Serious: Yes (Other)
  Sender: FDA-Public Use
  Company Number: JP-ASTRAZENECA-2019SE16099

PATIENT
  Age: 23479 Day
  Sex: Female
  Weight: 56 kg

DRUGS (7)
  1. TAGRISSO [Suspect]
     Active Substance: OSIMERTINIB
     Indication: NON-SMALL CELL LUNG CANCER
     Route: 048
     Dates: start: 20180726, end: 20180907
  2. TAGRISSO [Suspect]
     Active Substance: OSIMERTINIB
     Indication: NON-SMALL CELL LUNG CANCER
     Route: 048
     Dates: start: 20190817, end: 20190907
  3. BEVACIZUMAB. [Concomitant]
     Active Substance: BEVACIZUMAB
     Indication: NON-SMALL CELL LUNG CANCER
     Route: 065
     Dates: start: 20180726, end: 20180907
  4. PREDONINE [Concomitant]
     Active Substance: PREDNISOLONE
     Dates: start: 20180926
  5. PREDONINE [Concomitant]
     Active Substance: PREDNISOLONE
     Dates: start: 20180914
  6. PREDONINE [Concomitant]
     Active Substance: PREDNISOLONE
     Dates: start: 20180915
  7. TAGRISSO [Suspect]
     Active Substance: OSIMERTINIB
     Indication: NON-SMALL CELL LUNG CANCER
     Route: 048
     Dates: start: 20180726, end: 20180816

REACTIONS (2)
  - Haemoglobin decreased [Recovered/Resolved]
  - Lung disorder [Recovering/Resolving]

NARRATIVE: CASE EVENT DATE: 20180817
